FAERS Safety Report 8131905-6 (Version None)
Quarter: 2012Q1

REPORT INFORMATION
  Report Type: 
  Country: None (occurrence: None)
  Receive Date: 20120213
  Receipt Date: 20120208
  Transmission Date: 20120608
  Serious: Yes (Other)
  Sender: FDA-Public Use
  Company Number: BR-PFIZER INC-2012035276

PATIENT
  Age: 74 Year
  Sex: Female

DRUGS (1)
  1. CELEBREX [Suspect]
     Indication: OSTEOARTHRITIS
     Dosage: 200 MG (ONE TABLET), 2X/DAY
     Route: 048
     Dates: start: 20070208

REACTIONS (3)
  - GLUCOSE TOLERANCE IMPAIRED [None]
  - OSTEOARTHRITIS [None]
  - DEPRESSION [None]
